FAERS Safety Report 13148779 (Version 1)
Quarter: 2017Q1

REPORT INFORMATION
  Report Type: Spontaneous
  Country: US (occurrence: US)
  Receive Date: 20170125
  Receipt Date: 20170125
  Transmission Date: 20170428
  Serious: No
  Sender: FDA-Public Use
  Company Number: US-PFIZER INC-2017030996

PATIENT
  Age: 59 Year
  Sex: Female
  Weight: 72 kg

DRUGS (4)
  1. EFFEXOR XR [Suspect]
     Active Substance: VENLAFAXINE HYDROCHLORIDE
     Dosage: 225 MG, DAILY (75 MG, 3 CAPSULES ONCE A DAY USUALLY AFTER BREAKFAST)
     Route: 048
     Dates: start: 2016
  2. ABILIFY [Suspect]
     Active Substance: ARIPIPRAZOLE
     Indication: SCHIZOPHRENIA
  3. EFFEXOR XR [Suspect]
     Active Substance: VENLAFAXINE HYDROCHLORIDE
     Indication: BIPOLAR I DISORDER
     Dosage: 150 MG, DAILY
     Route: 048
  4. ABILIFY [Suspect]
     Active Substance: ARIPIPRAZOLE
     Indication: BIPOLAR DISORDER
     Dosage: 15 MG, 1X/DAY

REACTIONS (1)
  - Hunger [Unknown]
